FAERS Safety Report 9854123 (Version 1)
Quarter: 2014Q1

REPORT INFORMATION
  Report Type: Report from Study
  Country: US (occurrence: US)
  Receive Date: 20140129
  Receipt Date: 20140129
  Transmission Date: 20141002
  Serious: Yes (Hospitalization)
  Sender: FDA-Public Use
  Company Number: US-ROCHE-1335674

PATIENT
  Age: 53 Year
  Sex: Female
  Weight: 70.37 kg

DRUGS (11)
  1. VALIUM [Suspect]
     Indication: PRODUCT USED FOR UNKNOWN INDICATION
     Route: 065
  2. ALBUTEROL SULFATE [Concomitant]
  3. OMEPRAZOLE [Concomitant]
  4. VORICONAZOLE [Concomitant]
  5. ALVESCO [Concomitant]
  6. DULERA [Concomitant]
  7. VORICONAZOLE [Concomitant]
  8. NASONEX [Concomitant]
  9. PRILOSEC [Concomitant]
  10. FLOVENT [Concomitant]
  11. SUDAFED [Concomitant]

REACTIONS (11)
  - Pyrexia [Unknown]
  - Bronchiectasis [Unknown]
  - Cough [Unknown]
  - Respiratory tract congestion [Unknown]
  - Dyspnoea [Unknown]
  - Lung infection [Unknown]
  - Sinusitis [Unknown]
  - Chills [Unknown]
  - Night sweats [Unknown]
  - Productive cough [Unknown]
  - Laboratory test abnormal [Unknown]
